FAERS Safety Report 12614054 (Version 1)
Quarter: 2016Q3

REPORT INFORMATION
  Report Type: Spontaneous
  Country: US (occurrence: US)
  Receive Date: 20160802
  Receipt Date: 20160802
  Transmission Date: 20161109
  Serious: No
  Sender: FDA-Public Use
  Company Number: US-PFIZER INC-2016369363

PATIENT
  Age: 77 Year
  Sex: Female

DRUGS (31)
  1. PROPULSID [Suspect]
     Active Substance: CISAPRIDE
     Dosage: UNK
  2. ADVAIR HFA [Suspect]
     Active Substance: FLUTICASONE PROPIONATE\SALMETEROL XINAFOATE
     Dosage: UNK
  3. PHENOTHRIN [Suspect]
     Active Substance: PHENOTHRIN
     Dosage: UNK
  4. MOTRIN [Suspect]
     Active Substance: IBUPROFEN
     Dosage: UNK
  5. PENICILLAMINE [Suspect]
     Active Substance: PENICILLAMINE
     Dosage: UNK
  6. OXYCONTIN [Suspect]
     Active Substance: OXYCODONE HYDROCHLORIDE
     Dosage: UNK
  7. PLAQUENIL [Suspect]
     Active Substance: HYDROXYCHLOROQUINE SULFATE
     Dosage: UNK
  8. SULFASALAZINE. [Suspect]
     Active Substance: SULFASALAZINE
     Dosage: UNK
  9. XANAX [Suspect]
     Active Substance: ALPRAZOLAM
     Dosage: UNK
  10. IBUPROFEN. [Suspect]
     Active Substance: IBUPROFEN
     Dosage: UNK
  11. AMOXICILLIN. [Suspect]
     Active Substance: AMOXICILLIN
     Dosage: UNK
  12. TYLENOL [Suspect]
     Active Substance: ACETAMINOPHEN
     Dosage: UNK
  13. POLARAMINE [Suspect]
     Active Substance: DEXCHLORPHENIRAMINE MALEATE
     Dosage: UNK
  14. LEVAQUIN [Suspect]
     Active Substance: LEVOFLOXACIN
     Dosage: UNK
  15. TRYPTAN [Suspect]
     Active Substance: TRYPTOPHAN
     Dosage: UNK
  16. FENOPROFEN. [Suspect]
     Active Substance: FENOPROFEN
     Dosage: UNK
  17. BIAXIN [Suspect]
     Active Substance: CLARITHROMYCIN
     Dosage: UNK
  18. TYLENOL 8 HR [Suspect]
     Active Substance: ACETAMINOPHEN
     Dosage: UNK
  19. TORADOL [Suspect]
     Active Substance: KETOROLAC TROMETHAMINE
     Dosage: UNK
  20. LISINOPRIL. [Suspect]
     Active Substance: LISINOPRIL
     Dosage: UNK
  21. FELDENE [Suspect]
     Active Substance: PIROXICAM
     Dosage: UNK
  22. ZOLOFT [Suspect]
     Active Substance: SERTRALINE HYDROCHLORIDE
     Dosage: UNK
  23. DILANTIN [Suspect]
     Active Substance: PHENYTOIN
     Dosage: UNK
  24. TRIOTANN [Suspect]
     Active Substance: CHLORPHENIRAMINE TANNATE\PHENYLEPHRINE TANNATE\PYRILAMINE TANNATE
     Dosage: UNK
  25. NABUMETONE. [Suspect]
     Active Substance: NABUMETONE
     Dosage: UNK
  26. PRENATAL PLUS IRON [Suspect]
     Active Substance: .ALPHA.-TOCOPHEROL ACETATE, DL-\.BETA.-CAROTENE\ASCORBIC ACID\CALCIUM CARBONATE\CHOLECALCIFEROL\CUPRIC OXIDE\CYANOCOBALAMIN\FERROUS FUMARATE\FOLIC ACID\NIACINAMIDE\PYRIDOXINE HYDROCHLORIDE\RIBOFLAVIN\THIAMINE MONONITRATE\VITAMIN A ACETATE\ZINC OXIDE
     Dosage: UNK
  27. AUGMENTIN [Suspect]
     Active Substance: AMOXICILLIN\CLAVULANATE POTASSIUM
     Dosage: UNK
  28. VIVACTIL [Suspect]
     Active Substance: PROTRIPTYLINE HYDROCHLORIDE
     Dosage: UNK
  29. PRENATAL [Suspect]
     Active Substance: VITAMINS
     Dosage: UNK
  30. RUMEX ACETOSA LEAF. [Suspect]
     Active Substance: RUMEX ACETOSA LEAF
     Dosage: UNK
  31. HYDROXYCHLOROQUINE [Suspect]
     Active Substance: HYDROXYCHLOROQUINE
     Dosage: UNK

REACTIONS (1)
  - Drug hypersensitivity [Not Recovered/Not Resolved]
